FAERS Safety Report 7814484-X (Version None)
Quarter: 2011Q4

REPORT INFORMATION
  Report Type: 
  Country: None (occurrence: None)
  Receive Date: 20111014
  Receipt Date: 20111007
  Transmission Date: 20120403
  Serious: Yes (Other)
  Sender: FDA-Public Use
  Company Number: PHEH2011US06402

PATIENT
  Sex: Female

DRUGS (9)
  1. VIVELLE-DOT [Suspect]
     Dosage: 0.05 MG, UNK
     Route: 062
     Dates: start: 20110919
  2. ESTRADIOL [Concomitant]
     Dosage: 1 MG, UNK
     Route: 048
  3. VIVELLE-DOT [Suspect]
     Dosage: UNK
     Route: 062
  4. ASPIRIN [Concomitant]
     Dosage: 81 MG, QD
  5. VIVELLE-DOT [Suspect]
     Dosage: 0.037 MG, UNK
     Route: 062
     Dates: start: 20110801
  6. TROPOROL [Concomitant]
     Dosage: 100 MG, QD
  7. LOVAZA [Concomitant]
     Dosage: 1 G, BID
  8. VIVELLE-DOT [Suspect]
     Dosage: 0.037 MG, UNK
     Route: 062
  9. AVALIDE [Concomitant]
     Dosage: 1 DF, QD

REACTIONS (7)
  - NAUSEA [None]
  - NIGHT SWEATS [None]
  - GASTROENTERITIS VIRAL [None]
  - HOT FLUSH [None]
  - THYROID NEOPLASM [None]
  - FEELING ABNORMAL [None]
  - HEADACHE [None]
